FAERS Safety Report 23246953 (Version 4)
Quarter: 2024Q1

REPORT INFORMATION
  Report Type: Report from Study
  Country: BR (occurrence: BR)
  Receive Date: 20231130
  Receipt Date: 20240223
  Transmission Date: 20240410
  Serious: Yes (Hospitalization, Other)
  Sender: FDA-Public Use
  Company Number: BR-PFIZER INC-PV202300101458

PATIENT
  Age: 65 Year
  Sex: Female
  Weight: 54 kg

DRUGS (5)
  1. ELRANATAMAB [Suspect]
     Active Substance: ELRANATAMAB
     Indication: Plasma cell myeloma refractory
     Dosage: THE PRIMING DOSE
     Route: 058
     Dates: start: 20230605
  2. ELRANATAMAB [Suspect]
     Active Substance: ELRANATAMAB
     Dosage: D8,CYCLE 1/WK (THEN FROM WEEK 2 EACH 7 DAYS)
     Route: 058
     Dates: start: 20230612
  3. ELRANATAMAB [Suspect]
     Active Substance: ELRANATAMAB
     Dosage: 76 MG, CYCLIC (EVERY WEEK)
     Route: 058
     Dates: start: 20230626
  4. ELRANATAMAB [Suspect]
     Active Substance: ELRANATAMAB
     Dosage: 76 MG, CYCLIC (EVERY TWO WEEK)
     Route: 058
     Dates: start: 202308
  5. ELRANATAMAB [Suspect]
     Active Substance: ELRANATAMAB
     Dosage: 32 MG, CYCLIC (EVERY EVERY 15 DAYS)
     Route: 058
     Dates: start: 20230911, end: 20231218

REACTIONS (7)
  - Rash maculo-papular [Recovered/Resolved]
  - Disseminated cryptococcosis [Recovering/Resolving]
  - Cytokine release syndrome [Recovered/Resolved]
  - Neutropenia [Not Recovered/Not Resolved]
  - Anaemia [Not Recovered/Not Resolved]
  - Platelet count decreased [Not Recovered/Not Resolved]
  - Skin exfoliation [Recovered/Resolved]

NARRATIVE: CASE EVENT DATE: 20230606
